FAERS Safety Report 18981682 (Version 1)
Quarter: 2021Q1

REPORT INFORMATION
  Report Type: Other
  Country: None (occurrence: AT)
  Receive Date: 20210308
  Receipt Date: 20210308
  Transmission Date: 20210420
  Serious: Yes (Hospitalization)
  Sender: FDA-Public Use
  Company Number: AT-B.BRAUN MEDICAL INC.-2107707

PATIENT
  Age: 60 Year
  Sex: Male

DRUGS (1)
  1. HEPARIN SODIUM IN SODIUM CHLORIDE [Suspect]
     Active Substance: HEPARIN SODIUM
     Indication: CATHETER MANAGEMENT

REACTIONS (2)
  - Device malfunction [None]
  - Catheter site inflammation [None]
